FAERS Safety Report 14112312 (Version 18)
Quarter: 2020Q1

REPORT INFORMATION
  Report Type: Spontaneous
  Country: US (occurrence: US)
  Receive Date: 20171020
  Receipt Date: 20200225
  Transmission Date: 20200409
  Serious: Yes (Hospitalization)
  Sender: FDA-Public Use
  Company Number: US-ACTELION-A-US2017-161309

PATIENT
  Age: 86 Year
  Sex: Female

DRUGS (29)
  1. BENZONATATE. [Concomitant]
     Active Substance: BENZONATATE
  2. SULFAMETHOXAZOLE AND TRIMETHOPRIM [Concomitant]
     Active Substance: SULFAMETHOXAZOLE\TRIMETHOPRIM
  3. MIRTAZAPINE. [Concomitant]
     Active Substance: MIRTAZAPINE
  4. HYDROCODONE BITARTRATE AND ACETAMINOPHEN [Concomitant]
     Active Substance: ACETAMINOPHEN\HYDROCODONE BITARTRATE
     Dosage: 5-325MG
     Dates: start: 20190514
  5. AZITHROMYCIN ANHYDROUS. [Concomitant]
     Active Substance: AZITHROMYCIN ANHYDROUS
  6. CIPROFLOXACIN. [Concomitant]
     Active Substance: CIPROFLOXACIN
  7. OPSUMIT [Suspect]
     Active Substance: MACITENTAN
     Indication: PULMONARY ARTERIAL HYPERTENSION
     Dosage: 10 MG, QD
     Route: 048
     Dates: start: 20151008
  8. POTASSIUM CHLORIDE. [Concomitant]
     Active Substance: POTASSIUM CHLORIDE
     Dosage: UNK
     Dates: start: 20180329
  9. FUROSEMIDE. [Concomitant]
     Active Substance: FUROSEMIDE
     Dosage: 20 MG
     Dates: start: 20180813
  10. OMEPRAZOLE. [Concomitant]
     Active Substance: OMEPRAZOLE
     Dosage: 20 MG
     Dates: start: 20181201, end: 20190530
  11. ESTRADIOL. [Concomitant]
     Active Substance: ESTRADIOL
     Dosage: 1 MG
     Dates: start: 20190108
  12. TIMOLOL. [Concomitant]
     Active Substance: TIMOLOL
  13. ZYRTEC [Concomitant]
     Active Substance: CETIRIZINE HYDROCHLORIDE
  14. ADCIRCA [Concomitant]
     Active Substance: TADALAFIL
     Dosage: 40 MG, QD
     Route: 048
     Dates: start: 20171115
  15. SIMVASTATIN. [Concomitant]
     Active Substance: SIMVASTATIN
     Dosage: 20 MG
     Dates: start: 20180927
  16. DIAZEPAM. [Concomitant]
     Active Substance: DIAZEPAM
     Dosage: 5 MG
     Dates: start: 20190416
  17. CEPHALEXIN. [Concomitant]
     Active Substance: CEPHALEXIN
  18. METOPROLOL. [Concomitant]
     Active Substance: METOPROLOL
     Dosage: 25 MG
     Dates: start: 20180529
  19. ALLEGRA [Concomitant]
     Active Substance: FEXOFENADINE HYDROCHLORIDE
  20. LORATADINE. [Concomitant]
     Active Substance: LORATADINE
  21. FLUTICASONE. [Suspect]
     Active Substance: FLUTICASONE
     Indication: MULTIPLE ALLERGIES
     Dosage: 50 MCG
     Route: 045
     Dates: start: 20181226
  22. DOK [Concomitant]
     Active Substance: DOCUSATE SODIUM
  23. OPSUMIT [Suspect]
     Active Substance: MACITENTAN
     Dosage: 10 MG, QD
     Route: 048
     Dates: start: 20180619
  24. MELATONIN [Concomitant]
     Active Substance: MELATONIN
     Dosage: 1 MG
     Dates: start: 20190410
  25. LEVOTHYROXIN [Concomitant]
     Active Substance: LEVOTHYROXINE
  26. NITROFURAN [Concomitant]
     Active Substance: NITROFURANTOIN
  27. CEFUROXIME. [Concomitant]
     Active Substance: CEFUROXIME
  28. MOMETASONE [Concomitant]
     Active Substance: MOMETASONE
  29. POLYETHYLENE GLYCOL [Concomitant]
     Active Substance: POLYETHYLENE GLYCOLS

REACTIONS (23)
  - Nasal congestion [Unknown]
  - Alopecia [Unknown]
  - Tinnitus [Unknown]
  - Cystitis [Recovering/Resolving]
  - Pulmonary mass [Unknown]
  - Insomnia [Not Recovered/Not Resolved]
  - Viral infection [Unknown]
  - Hospitalisation [Unknown]
  - Hypertension [Unknown]
  - Immunodeficiency [Unknown]
  - Rash [Unknown]
  - Pneumonia [Unknown]
  - Diarrhoea [Not Recovered/Not Resolved]
  - Abdominal pain upper [Not Recovered/Not Resolved]
  - Epistaxis [Unknown]
  - Asthenia [Unknown]
  - Upper respiratory tract infection [Unknown]
  - Dyspnoea [Unknown]
  - Seasonal allergy [Not Recovered/Not Resolved]
  - Urinary tract infection [Not Recovered/Not Resolved]
  - Multiple allergies [Not Recovered/Not Resolved]
  - Accidental overdose [Unknown]
  - Headache [Unknown]

NARRATIVE: CASE EVENT DATE: 20180605
